FAERS Safety Report 7539853-7 (Version None)
Quarter: 2011Q2

REPORT INFORMATION
  Report Type: 
  Country: None (occurrence: None)
  Receive Date: 20110610
  Receipt Date: 20110517
  Transmission Date: 20111010
  Serious: No
  Sender: FDA-Public Use
  Company Number: US-JNJFOC-20110302369

PATIENT
  Sex: Male
  Weight: 106.6 kg

DRUGS (9)
  1. SENOKOT [Concomitant]
     Indication: ILL-DEFINED DISORDER
  2. ATIVAN [Concomitant]
     Indication: ILL-DEFINED DISORDER
  3. DITROPAN [Concomitant]
     Indication: ILL-DEFINED DISORDER
  4. CONSTULOSE [Concomitant]
     Indication: ILL-DEFINED DISORDER
  5. INVEGA SUSTENNA [Suspect]
     Route: 030
     Dates: start: 20100618, end: 20110209
  6. CELEXA [Concomitant]
     Indication: ILL-DEFINED DISORDER
  7. MIRALAX [Concomitant]
     Indication: ILL-DEFINED DISORDER
  8. INVEGA SUSTENNA [Suspect]
     Indication: SCHIZOPHRENIA
     Route: 030
     Dates: start: 20110302
  9. CLOZAPINE [Concomitant]
     Indication: ILL-DEFINED DISORDER

REACTIONS (3)
  - INJECTION SITE CELLULITIS [None]
  - PRODUCT QUALITY ISSUE [None]
  - INAPPROPRIATE SCHEDULE OF DRUG ADMINISTRATION [None]
